FAERS Safety Report 8918166 (Version 5)
Quarter: 2014Q2

REPORT INFORMATION
  Report Type: Spontaneous
  Country: US (occurrence: US)
  Receive Date: 20121120
  Receipt Date: 20140407
  Transmission Date: 20141212
  Serious: Yes (Hospitalization, Disabling, Other)
  Sender: FDA-Public Use
  Company Number: US-009507513-1211USA007930

PATIENT
  Sex: Female
  Weight: 80.73 kg

DRUGS (5)
  1. FOSAMAX [Suspect]
     Indication: OSTEOPENIA
     Dosage: 70 MG, QW
     Route: 048
     Dates: start: 200408, end: 20080110
  2. FOSAMAX [Suspect]
     Dosage: UNK
     Route: 048
     Dates: start: 2003, end: 2011
  3. FOSAMAX PLUS D [Suspect]
     Indication: OSTEOPENIA
     Dosage: 70 MG-2800, QW
     Route: 048
     Dates: start: 20080110, end: 201012
  4. BONIVA [Suspect]
     Dosage: UNK
     Dates: start: 2003, end: 2011
  5. IBANDRONATE SODIUM [Suspect]
     Dosage: UNK
     Dates: start: 2003, end: 2011

REACTIONS (34)
  - Intramedullary rod insertion [Unknown]
  - Toe operation [Unknown]
  - Syncope [Unknown]
  - Spinal osteoarthritis [Unknown]
  - Spinal column stenosis [Unknown]
  - Intervertebral disc operation [Unknown]
  - Chronic myeloid leukaemia [Not Recovered/Not Resolved]
  - Spinal laminectomy [Unknown]
  - Dehydration [Unknown]
  - Osteoporosis [Not Recovered/Not Resolved]
  - Low turnover osteopathy [Not Recovered/Not Resolved]
  - Pancytopenia [Unknown]
  - Femur fracture [Not Recovered/Not Resolved]
  - Diarrhoea [Unknown]
  - Hypertension [Unknown]
  - Hypercholesterolaemia [Unknown]
  - Osteoarthritis [Unknown]
  - Hysterectomy [Unknown]
  - Foot deformity [Unknown]
  - Scoliosis [Unknown]
  - Atrial flutter [Recovered/Resolved]
  - Syncope [Unknown]
  - Patellofemoral pain syndrome [Unknown]
  - Osteoporosis [Unknown]
  - Foot deformity [Unknown]
  - Atrophic vulvovaginitis [Unknown]
  - Intervertebral disc protrusion [Unknown]
  - Dermal cyst [Recovered/Resolved]
  - Infection [Recovered/Resolved]
  - Intervertebral disc degeneration [Unknown]
  - Scoliosis [Unknown]
  - Pain [Not Recovered/Not Resolved]
  - Haemoglobin decreased [Unknown]
  - Dizziness [Unknown]
